FAERS Safety Report 18845017 (Version 1)
Quarter: 2021Q1

REPORT INFORMATION
  Report Type: Report from Study
  Country: US (occurrence: US)
  Receive Date: 20210203
  Receipt Date: 20210203
  Transmission Date: 20210419
  Serious: Yes (Other)
  Sender: FDA-Public Use
  Company Number: US-EXELIXIS-CABO-20031558

PATIENT
  Sex: Male

DRUGS (1)
  1. CABOMETYX [Suspect]
     Active Substance: CABOZANTINIB S-MALATE
     Indication: RENAL CANCER
     Dosage: UNK

REACTIONS (6)
  - Pancreatitis [Unknown]
  - Rash [Unknown]
  - Nausea [Unknown]
  - Dysphonia [Unknown]
  - Diarrhoea [Unknown]
  - Constipation [Unknown]
